FAERS Safety Report 10654959 (Version 1)
Quarter: 2014Q4

REPORT INFORMATION
  Report Type: Spontaneous
  Country: US (occurrence: None)
  Receive Date: 20141215
  Receipt Date: 20141215
  Transmission Date: 20150529
  Serious: Yes (Hospitalization, Disabling, Other)
  Sender: FDA-Public Use
  Company Number: None

PATIENT
  Age: 48 Year

DRUGS (1)
  1. LEFLUNOMIDE. [Suspect]
     Active Substance: LEFLUNOMIDE
     Indication: RHEUMATOID ARTHRITIS
     Dates: start: 20141126, end: 20141204

REACTIONS (18)
  - Self-injurious ideation [None]
  - Thinking abnormal [None]
  - Hypophagia [None]
  - Paraesthesia [None]
  - Diarrhoea [None]
  - Nausea [None]
  - Headache [None]
  - Mental disorder [None]
  - Blood pressure abnormal [None]
  - Dizziness [None]
  - Panic attack [None]
  - Dysgeusia [None]
  - Depression [None]
  - Decreased appetite [None]
  - Palpitations [None]
  - Mood altered [None]
  - Hypoaesthesia [None]
  - Anxiety [None]

NARRATIVE: CASE EVENT DATE: 20141209
